FAERS Safety Report 10892885 (Version 1)
Quarter: 2015Q1

REPORT INFORMATION
  Report Type: Other
  Country: FR (occurrence: FR)
  Receive Date: 20150306
  Receipt Date: 20150306
  Transmission Date: 20150721
  Serious: Yes (Hospitalization, Other)
  Sender: FDA-Public Use
  Company Number: FR-ENDO PHARMACEUTICALS INC-HYDX20150004

PATIENT
  Age: 72 Year
  Sex: Male

DRUGS (1)
  1. HYDROXYZINE HYDROCHLORIDE TABLETS [Suspect]
     Active Substance: HYDROXYZINE HYDROCHLORIDE
     Indication: PRODUCT USED FOR UNKNOWN INDICATION
     Route: 065

REACTIONS (2)
  - Overdose [Recovered/Resolved]
  - Electrocardiogram QT prolonged [Recovered/Resolved]
